FAERS Safety Report 14242100 (Version 2)
Quarter: 2017Q4

REPORT INFORMATION
  Report Type: Spontaneous
  Country: DE (occurrence: DE)
  Receive Date: 20171201
  Receipt Date: 20171228
  Transmission Date: 20180321
  Serious: Yes (Hospitalization, Other)
  Sender: FDA-Public Use
  Company Number: DE-ASTRAZENECA-2017SF20470

PATIENT
  Age: 72 Year
  Sex: Male

DRUGS (6)
  1. SIMVASTATIN. [Interacting]
     Active Substance: SIMVASTATIN
     Route: 065
  2. RAMIPRIL. [Concomitant]
     Active Substance: RAMIPRIL
  3. ACETYLSALICYLIC ACID [Concomitant]
     Active Substance: ASPIRIN
  4. TICAGRELOR. [Suspect]
     Active Substance: TICAGRELOR
     Indication: PERCUTANEOUS CORONARY INTERVENTION
     Route: 048
  5. TIOTROPIUM BROMIDE [Concomitant]
     Active Substance: TIOTROPIUM BROMIDE
     Dosage: TWO TIMES A DAY
     Route: 055
  6. PANTOPRAZOLE [Concomitant]
     Active Substance: PANTOPRAZOLE

REACTIONS (2)
  - Drug interaction [Unknown]
  - Rhabdomyolysis [Recovered/Resolved]
